FAERS Safety Report 7370674-4 (Version None)
Quarter: 2011Q1

REPORT INFORMATION
  Report Type: 
  Country: None (occurrence: None)
  Receive Date: 20110323
  Receipt Date: 20090726
  Transmission Date: 20110831
  Serious: Yes (Hospitalization, Other)
  Sender: FDA-Public Use
  Company Number: US-BAYER-200928006NA

PATIENT
  Sex: Female
  Weight: 99.773 kg

DRUGS (49)
  1. AVANDIA [Concomitant]
     Dosage: 4 MG, BID
     Route: 048
     Dates: start: 19950101
  2. NEXIUM [Concomitant]
     Dosage: 40 MG, QD
  3. GLYBURIDE [Concomitant]
     Dosage: 5 MG, BID
  4. VANCOMYCIN [Concomitant]
     Dosage: 1 G, UNK
     Route: 042
     Dates: start: 20050926, end: 20050926
  5. OPTIRAY 350 [Concomitant]
     Dosage: UNK 100 + 50
     Route: 042
     Dates: start: 19990612
  6. OPTIRAY 350 [Concomitant]
     Dosage: 125 CC
     Route: 042
     Dates: start: 20010503
  7. HUMALOG [Concomitant]
  8. LASIX [Concomitant]
     Dosage: 40 MG, QD
     Route: 048
     Dates: start: 20040101
  9. PROZAC [Concomitant]
     Route: 048
  10. NITRO-DUR [Concomitant]
  11. ANCEF [Concomitant]
     Dosage: 1 G, UNK
     Route: 042
  12. INSULIN [Concomitant]
     Dosage: 250/250
     Route: 041
     Dates: start: 20050926, end: 20050926
  13. HEPARIN [Concomitant]
     Dosage: UNK
     Route: 042
     Dates: start: 20050926, end: 20050926
  14. PROTAMINE SULFATE [Concomitant]
     Dosage: 400MG AFTER TEST DOSE
     Route: 042
     Dates: start: 20050926, end: 20050926
  15. NEOSPORIN OPHTH [BACITRACIN ZINC,NEOMYCIN SULFATE,POLYMYXIN B SULFATE] [Concomitant]
  16. TRASYLOL [Suspect]
     Indication: CORONARY ARTERY BYPASS
     Dosage: 1 ML, TEST DOSE
     Route: 042
     Dates: start: 20050926, end: 20050926
  17. TRASYLOL [Suspect]
     Indication: CARDIAC ABLATION
     Dosage: 200 ML, LOADING DOSE
     Route: 042
     Dates: start: 20050926
  18. ZETIA [Concomitant]
     Dosage: 10 MG, QD
     Route: 048
  19. PLAVIX [Concomitant]
     Dosage: 75 MG, QD
  20. EVISTA [Concomitant]
     Dosage: 1 TAB DAILY
  21. INDAPAMIDE [Concomitant]
     Dosage: 2.5 MG, QD
     Route: 048
  22. SEROQUEL [Concomitant]
     Dosage: 25 MG, QD
     Route: 048
  23. MIDAZOLAM [Concomitant]
     Dosage: UNK
     Route: 042
     Dates: start: 20050926, end: 20050926
  24. OPTIRAY 350 [Concomitant]
     Dosage: 90 ML, UNK
     Route: 042
     Dates: start: 20050924
  25. RED BLOOD CELLS [Concomitant]
     Dosage: 2 UNITS
     Route: 042
     Dates: start: 20051009
  26. TRASYLOL [Suspect]
     Indication: PHLEBECTOMY
     Dosage: 50 ML, Q1HR
     Dates: start: 20050926
  27. NITROGLYCERIN [Concomitant]
     Dosage: 50/250
     Route: 042
     Dates: start: 20050926, end: 20050926
  28. DOPAMINE [Concomitant]
     Dosage: 800/250
     Route: 042
  29. NEURONTIN [Concomitant]
  30. MUCOMYST [Concomitant]
  31. HYDROCHLOROTHIAZIDE [Concomitant]
     Dosage: UNK UNK, QD
  32. LIDOCAINE [Concomitant]
     Dosage: 100 MG, UNK
     Route: 042
     Dates: start: 20050926, end: 20050926
  33. RED BLOOD CELLS [Concomitant]
     Dosage: 2 UNITS
     Route: 042
     Dates: start: 20051005
  34. LANTUS [Concomitant]
  35. ISOSORBIDE DINITRATE [Concomitant]
     Dosage: 40 MG, BID
     Route: 048
  36. RISPERDAL [Concomitant]
     Dosage: 5 MG 1.5 TABS
     Route: 048
  37. METHADONE [Concomitant]
     Dosage: 5 MG, BID
     Route: 048
  38. PAXIL [Concomitant]
     Dosage: 20 MG, QD
     Route: 048
  39. MANNITOL [Concomitant]
     Dosage: 125 MG, UNK
     Route: 042
     Dates: start: 20050926, end: 20050926
  40. CARDIOPLEGIA [Concomitant]
     Dosage: UNK
     Dates: start: 20050926, end: 20050926
  41. RED BLOOD CELLS [Concomitant]
     Dosage: 1 UNIT
     Route: 042
     Dates: start: 20050927
  42. RED BLOOD CELLS [Concomitant]
     Dosage: 1 UNIT
     Route: 042
     Dates: start: 20051006
  43. ASPIRIN [Concomitant]
     Dosage: 325 MG, QD
     Route: 048
  44. DIAZEPAM [Concomitant]
     Dosage: 10 MG 3 TIMES A DAY
  45. TRASYLOL [Suspect]
     Indication: ECHOCARDIOGRAM
     Dosage: 200 ML, PRIME
     Dates: start: 20050926, end: 20050926
  46. TOPAMAX [Concomitant]
     Dosage: 200 MG, BID
     Route: 048
  47. RED BLOOD CELLS [Concomitant]
     Dosage: 2 U, UNK
     Route: 042
     Dates: start: 20050926
  48. RED BLOOD CELLS [Concomitant]
     Dosage: 1 UNIT
     Dates: start: 20051007
  49. FLUOXETINE [Concomitant]

REACTIONS (8)
  - FEAR [None]
  - PAIN [None]
  - RENAL FAILURE [None]
  - INJURY [None]
  - UNEVALUABLE EVENT [None]
  - DEPRESSION [None]
  - ANXIETY [None]
  - ANHEDONIA [None]
